FAERS Safety Report 6421384-9 (Version None)
Quarter: 2009Q4

REPORT INFORMATION
  Report Type: 
  Country: None (occurrence: None)
  Receive Date: 20091030
  Receipt Date: 20091026
  Transmission Date: 20100525
  Serious: Yes (Death, Life-Threatening, Other)
  Sender: FDA-Public Use
  Company Number: PHHY2009JP41238

PATIENT
  Age: 51 Year
  Sex: Male

DRUGS (3)
  1. NEORAL [Suspect]
     Indication: BONE MARROW TRANSPLANT
     Dosage: 100 MG/DAY
     Route: 048
     Dates: end: 20081014
  2. NEORAL [Suspect]
     Indication: CHRONIC GRAFT VERSUS HOST DISEASE
  3. PREDNISOLONE [Concomitant]
     Dosage: 30 MG, UNK
     Route: 048

REACTIONS (3)
  - GLOMERULONEPHRITIS MEMBRANOUS [None]
  - INFECTION [None]
  - NEPHROTIC SYNDROME [None]
